FAERS Safety Report 14877132 (Version 5)
Quarter: 2023Q1

REPORT INFORMATION
  Report Type: Spontaneous
  Country: US (occurrence: US)
  Receive Date: 20180510
  Receipt Date: 20230331
  Transmission Date: 20230418
  Serious: Yes (Hospitalization, Other)
  Sender: FDA-Public Use
  Company Number: US-009507513-1805USA001976

PATIENT
  Age: 67 Year
  Sex: Female

DRUGS (5)
  1. NOXAFIL [Suspect]
     Active Substance: POSACONAZOLE
     Indication: Antifungal prophylaxis
     Dosage: 300 MG, QD
     Route: 048
  2. NOXAFIL [Suspect]
     Active Substance: POSACONAZOLE
     Dosage: 200 MG, QD
     Route: 048
  3. NOXAFIL [Suspect]
     Active Substance: POSACONAZOLE
     Dosage: 100 MG, QD
     Route: 048
  4. DECITABINE [Concomitant]
     Active Substance: DECITABINE
     Dosage: UNK
  5. VENETOCLAX [Concomitant]
     Active Substance: VENETOCLAX
     Dosage: UNK

REACTIONS (4)
  - Acquired apparent mineralocorticoid excess [Not Recovered/Not Resolved]
  - Drug level increased [Not Recovered/Not Resolved]
  - Hypokalaemia [Recovering/Resolving]
  - Diarrhoea [Recovered/Resolved]
